FAERS Safety Report 9503050 (Version 1)
Quarter: 2013Q1

REPORT INFORMATION
  Report Type: Spontaneous
  Country: US (occurrence: None)
  Receive Date: 20130225
  Receipt Date: 20130225
  Transmission Date: 20140127
  Serious: Yes (Hospitalization)
  Sender: FDA-Public Use
  Company Number: 367098

PATIENT
  Age: 70 Year
  Sex: Male
  Weight: 100.7 kg

DRUGS (13)
  1. VICTOZA [Suspect]
     Indication: TYPE 2 DIABETES MELLITUS
     Route: 058
     Dates: start: 20101104
  2. AMARYL [Suspect]
     Indication: TYPE 2 DIABETES MELLITUS
     Route: 048
  3. METFORMIN [Concomitant]
  4. COUMADIN [Concomitant]
  5. CRESTOR [Concomitant]
  6. LISINOPRIL [Concomitant]
  7. HYDROCHLOROTHIAZIDE [Concomitant]
  8. TOPROL [Concomitant]
  9. FISH OIL [Concomitant]
  10. NEXIUM [Concomitant]
  11. TESTOSTERONE CYPIONATE [Concomitant]
  12. VITAMIN B-12 [Concomitant]
  13. VITAMIN D3 [Concomitant]

REACTIONS (3)
  - Pancreatitis acute [None]
  - Blood glucose increased [None]
  - Hepatic calcification [None]
